FAERS Safety Report 5149209-2 (Version None)
Quarter: 2006Q4

REPORT INFORMATION
  Report Type: 
  Country: None (occurrence: None)
  Receive Date: 20061113
  Receipt Date: 20060914
  Transmission Date: 20070319
  Serious: No
  Sender: FDA-Public Use
  Company Number: US-GLAXOSMITHKLINE-A0620201A

PATIENT
  Sex: Female

DRUGS (4)
  1. COREG [Suspect]
     Indication: HYPERTENSION
     Route: 048
  2. VERAPAMIL [Concomitant]
  3. ACE INHIBITOR [Concomitant]
  4. DIURETIC [Concomitant]

REACTIONS (1)
  - FATIGUE [None]
